FAERS Safety Report 19593525 (Version 3)
Quarter: 2022Q1

REPORT INFORMATION
  Report Type: Report from Study
  Country: HU (occurrence: HU)
  Receive Date: 20210722
  Receipt Date: 20220215
  Transmission Date: 20220424
  Serious: Yes (Hospitalization)
  Sender: FDA-Public Use
  Company Number: HU-JNJFOC-20210727042

PATIENT
  Age: 58 Year
  Sex: Male
  Weight: 58 kg

DRUGS (18)
  1. ESKETAMINE [Suspect]
     Active Substance: ESKETAMINE
     Indication: Depression
     Dosage: 19-MAY-2021 13:10
     Dates: start: 20180209
  2. DULOXETINE [Concomitant]
     Active Substance: DULOXETINE
     Indication: Depression
     Route: 048
     Dates: start: 20170718
  3. RIVOTRIL [Concomitant]
     Active Substance: CLONAZEPAM
     Indication: Anxiety
     Route: 048
     Dates: start: 20170307
  4. RIVOTRIL [Concomitant]
     Active Substance: CLONAZEPAM
     Route: 048
  5. PIRACETAM [Concomitant]
     Active Substance: PIRACETAM
     Indication: Tinnitus
     Route: 048
     Dates: start: 20161017
  6. BETAGEN [BETAMETHASONE] [Concomitant]
     Indication: Tinnitus
     Route: 048
     Dates: start: 20150429
  7. VITAMIN D3 [Concomitant]
     Active Substance: CHOLECALCIFEROL
     Indication: Rheumatoid arthritis
     Dosage: DOSE: 3000, UNIT: OTHER
     Route: 048
     Dates: start: 20190801
  8. PANTOPRAZOLE SODIUM [Concomitant]
     Active Substance: PANTOPRAZOLE SODIUM
     Indication: Prophylaxis
     Route: 048
     Dates: start: 20201204
  9. PANTOPRAZOLE SODIUM [Concomitant]
     Active Substance: PANTOPRAZOLE SODIUM
     Route: 048
  10. CYCLOSPORINE [Concomitant]
     Active Substance: CYCLOSPORINE
     Indication: Rheumatoid arthritis
     Route: 048
     Dates: start: 20210526, end: 20210708
  11. KALIUM-R [Concomitant]
     Indication: Prophylaxis
     Route: 048
     Dates: start: 20210526
  12. KALIUM-R [Concomitant]
     Route: 048
  13. TELVIRAN [Concomitant]
     Indication: Granulocytopenia
     Route: 065
  14. TELVIRAN [Concomitant]
     Indication: Neutropenia
     Route: 048
  15. AMOXICILLIN [Concomitant]
     Active Substance: AMOXICILLIN
     Indication: Pharyngitis
     Route: 048
     Dates: start: 20210531
  16. AMOXICILLIN [Concomitant]
     Active Substance: AMOXICILLIN
     Route: 048
  17. MEDROL [Concomitant]
     Active Substance: METHYLPREDNISOLONE
     Indication: Granulocytopenia
     Route: 048
     Dates: start: 20210530
  18. MEDROL [Concomitant]
     Active Substance: METHYLPREDNISOLONE
     Indication: Neutropenia
     Route: 048

REACTIONS (1)
  - Myelodysplastic syndrome [Recovered/Resolved]

NARRATIVE: CASE EVENT DATE: 20210707
